FAERS Safety Report 20080930 (Version 1)
Quarter: 2021Q4

REPORT INFORMATION
  Report Type: Spontaneous
  Country: US (occurrence: None)
  Receive Date: 20211116
  Receipt Date: 20211116
  Transmission Date: 20220303
  Serious: Yes (Hospitalization)
  Sender: FDA-Public Use
  Company Number: None

PATIENT
  Sex: Female

DRUGS (13)
  1. NUCALA [Suspect]
     Active Substance: MEPOLIZUMAB
     Indication: Asthma
     Dosage: OTHER FREQUENCY : Q 21 DAYS;?
     Route: 058
     Dates: start: 20200325
  2. ALBUTEROL [Concomitant]
     Active Substance: ALBUTEROL
  3. ALOGLIPTIN [Concomitant]
     Active Substance: ALOGLIPTIN
  4. ESOMEPRAZOLE [Concomitant]
     Active Substance: ESOMEPRAZOLE
  5. FLUCONAZOLE [Concomitant]
     Active Substance: FLUCONAZOLE
  6. INSULIN NOS [Concomitant]
     Active Substance: INSULIN NOS
  7. LANTUS [Concomitant]
     Active Substance: INSULIN GLARGINE
  8. METFORMIN [Concomitant]
     Active Substance: METFORMIN HYDROCHLORIDE
  9. METHYPRED [Concomitant]
  10. MICONAZOLE [Concomitant]
     Active Substance: MICONAZOLE
  11. MONTELUKAST [Concomitant]
     Active Substance: MONTELUKAST SODIUM
  12. SYNTHROID [Concomitant]
     Active Substance: LEVOTHYROXINE SODIUM
  13. XARELTO [Concomitant]
     Active Substance: RIVAROXABAN

REACTIONS (2)
  - Therapy interrupted [None]
  - Asthma [None]
